FAERS Safety Report 7786998-2 (Version None)
Quarter: 2011Q3

REPORT INFORMATION
  Report Type: 
  Country: None (occurrence: None)
  Receive Date: 20110929
  Receipt Date: 20110919
  Transmission Date: 20111222
  Serious: Yes (Hospitalization)
  Sender: FDA-Public Use
  Company Number: US-BAYER-2011-020329

PATIENT
  Sex: Female
  Weight: 95.238 kg

DRUGS (1)
  1. YAZ [Suspect]
     Indication: CONTRACEPTION
     Dosage: UNK
     Route: 048
     Dates: start: 20070101, end: 20090101

REACTIONS (8)
  - BILE DUCT STONE [None]
  - MALAISE [None]
  - INJURY [None]
  - CHOLECYSTITIS ACUTE [None]
  - CHOLELITHIASIS [None]
  - GALLBLADDER NON-FUNCTIONING [None]
  - CHEST PAIN [None]
  - BACK PAIN [None]
